FAERS Safety Report 7490634-2 (Version None)
Quarter: 2011Q2

REPORT INFORMATION
  Report Type: 
  Country: None (occurrence: None)
  Receive Date: 20110519
  Receipt Date: 20110505
  Transmission Date: 20111010
  Serious: Yes (Hospitalization)
  Sender: FDA-Public Use
  Company Number: FR-CELGENEUS-056-50794-10123278

PATIENT
  Sex: Male
  Weight: 60 kg

DRUGS (12)
  1. DUPHALAC [Concomitant]
     Indication: CONSTIPATION
     Route: 048
     Dates: start: 20101230
  2. HEXAQUINE [Concomitant]
     Dosage: 1
     Route: 048
     Dates: start: 20090502, end: 20101224
  3. IMOVANE [Concomitant]
     Indication: INSOMNIA
     Dosage: 7.5 MILLIGRAM
     Route: 048
     Dates: start: 20101224
  4. LMWH [Concomitant]
     Indication: PHLEBITIS
  5. VIDAZA [Suspect]
     Dosage: 125 MILLIGRAM
     Route: 058
     Dates: start: 20110203, end: 20110204
  6. NEUPOGEN [Concomitant]
     Indication: NEUTROPENIA
     Route: 065
  7. NEORECORMON [Suspect]
     Dosage: 60000 IU (INTERNATIONAL UNIT)
     Route: 058
     Dates: start: 20100202
  8. VIDAZA [Suspect]
     Dosage: 125 MILLIGRAM
     Route: 058
     Dates: start: 20100208, end: 20101210
  9. NEXIUM [Concomitant]
     Dosage: 20 MILLIGRAM
     Route: 048
     Dates: start: 20100823
  10. GRANOCYTE [Concomitant]
     Indication: NEUTROPENIA
     Dosage: 3 IU (INTERNATIONAL UNIT)
     Route: 058
     Dates: start: 20101212, end: 20101218
  11. EXJADE [Concomitant]
     Indication: IRON OVERLOAD
     Dosage: 2.5 GRAM
     Route: 048
     Dates: start: 20080530
  12. GRANOCYTE [Concomitant]
     Route: 058
     Dates: start: 20110108, end: 20110116

REACTIONS (3)
  - HAEMATOMA [None]
  - ERYSIPELAS [None]
  - STAPHYLOCOCCAL SEPSIS [None]
